FAERS Safety Report 17428919 (Version 6)
Quarter: 2020Q2

REPORT INFORMATION
  Report Type: Spontaneous
  Country: US (occurrence: US)
  Receive Date: 20200218
  Receipt Date: 20200429
  Transmission Date: 20200713
  Serious: Yes (Other)
  Sender: FDA-Public Use
  Company Number: US-PFIZER INC-2020068139

PATIENT
  Age: 74 Year
  Sex: Female
  Weight: 50.8 kg

DRUGS (6)
  1. FLECTOR [Suspect]
     Active Substance: DICLOFENAC EPOLAMINE
     Indication: FIBROMYALGIA
     Dosage: 1 DF, 2X/DAY [APPLY ONE PATCH TO AFFECTED AREA EVERY 12 HOURS]
     Route: 062
  2. LIDOCAINE [LIDOCAINE HYDROCHLORIDE] [Concomitant]
     Active Substance: LIDOCAINE HYDROCHLORIDE
     Indication: NEURALGIA
  3. LIDOCAINE [LIDOCAINE HYDROCHLORIDE] [Concomitant]
     Active Substance: LIDOCAINE HYDROCHLORIDE
     Indication: SJOGREN^S SYNDROME
     Dosage: ALTERNATE TIME
  4. LIDOCAINE [LIDOCAINE HYDROCHLORIDE] [Concomitant]
     Active Substance: LIDOCAINE HYDROCHLORIDE
     Indication: FIBROMYALGIA
  5. FLECTOR [Suspect]
     Active Substance: DICLOFENAC EPOLAMINE
     Indication: PAIN
     Dosage: 1 DF, DAILY
     Route: 062
  6. FLECTOR [Suspect]
     Active Substance: DICLOFENAC EPOLAMINE
     Dosage: 2 DF, DAILY
     Route: 062

REACTIONS (11)
  - Ophthalmic herpes simplex [Unknown]
  - Off label use [Unknown]
  - Visual impairment [Unknown]
  - Product dose omission [Unknown]
  - Neuralgia [Unknown]
  - Pain [Unknown]
  - Eye infection bacterial [Unknown]
  - Hypoaesthesia [Unknown]
  - Feeling abnormal [Unknown]
  - Nerve injury [Unknown]
  - Myofascial pain syndrome [Unknown]

NARRATIVE: CASE EVENT DATE: 201802
